FAERS Safety Report 6951175-1 (Version None)
Quarter: 2010Q3

REPORT INFORMATION
  Report Type: 
  Country: None (occurrence: None)
  Receive Date: 20100828
  Receipt Date: 20100315
  Transmission Date: 20110219
  Serious: No
  Sender: FDA-Public Use
  Company Number: US-ABBOTT-10P-163-0632814-00

PATIENT
  Sex: Female
  Weight: 91.708 kg

DRUGS (3)
  1. NIASPAN [Suspect]
     Indication: BLOOD CHOLESTEROL INCREASED
     Dates: start: 20100308
  2. CRESTOR [Suspect]
     Indication: BLOOD CHOLESTEROL INCREASED
     Dates: start: 20090301
  3. SINGULAIR [Concomitant]
     Indication: ASTHMA

REACTIONS (3)
  - DYSPNOEA [None]
  - HEADACHE [None]
  - MUSCLE SPASMS [None]
